FAERS Safety Report 7999192 (Version 2)
Quarter: 2014Q3

REPORT INFORMATION
  Report Type: Spontaneous
  Country: JP (occurrence: None)
  Receive Date: 20110602
  Receipt Date: 20140701
  Transmission Date: 20150326
  Serious: Yes (Hospitalization, Other)
  Sender: FDA-Public Use
  Company Number: 2009JP007358

PATIENT
  Age: 65 Year
  Sex: Male
  Weight: 80 kg

DRUGS (25)
  1. PROGRAF [Suspect]
     Active Substance: TACROLIMUS\TACROLIMUS ANHYDROUS
     Indication: LUPUS NEPHRITIS
     Dosage: 1 MG, UNKNOWN FREQ., ORAL
     Route: 048
     Dates: start: 20090518, end: 20090713
  2. PREDNISOLONE (PREDNISOLONE) [Concomitant]
     Active Substance: PREDNISOLONE
  3. PREDNISOLONE (PREDNISOLONE) [Concomitant]
     Active Substance: PREDNISOLONE
  4. PREDNISOLONE (PREDNISOLONE) [Concomitant]
     Active Substance: PREDNISOLONE
  5. ZYLORIC (ALLOPURINOL) TABLET [Concomitant]
  6. NORVASC (AMLODIPINE BESILATE) TABLET [Concomitant]
  7. WARFARIN (WARFARIN POTASSIUM) TABLET [Concomitant]
  8. PREDNISOLONE. [Concomitant]
     Active Substance: PREDNISOLONE
  9. PREDNISOLONE (PREDNISOLONE) [Concomitant]
     Active Substance: PREDNISOLONE
  10. PREDNISOLONE (PREDNISOLONE) [Concomitant]
     Active Substance: PREDNISOLONE
  11. LASIX /00032601/ (FUROSEMIDE) TABLET [Concomitant]
  12. DIOVAN (VALSARTAN) TABLET [Concomitant]
  13. ITRIZOLE (ITRACONAZOLE) ORAL SOLUTION [Concomitant]
  14. PREDNISOLONE (PREDNISOLONE) [Concomitant]
     Active Substance: PREDNISOLONE
  15. PREDNISOLONE (PREDNISOLONE) [Concomitant]
     Active Substance: PREDNISOLONE
  16. MEXITIL (MEXILETINE HYDROCHLORIDE) CAPSULE [Concomitant]
  17. PREDNISOLONE (PREDNISOLONE) [Concomitant]
     Active Substance: PREDNISOLONE
  18. PREDNISOLONE (PREDNISOLONE) [Concomitant]
     Active Substance: PREDNISOLONE
  19. MAINTATE (BISOPROLOL FUMARATE) TABLET [Concomitant]
  20. PREDNISOLONE (PREDNISOLONE) [Concomitant]
     Active Substance: PREDNISOLONE
  21. PREDNISOLONE (PREDNISOLONE) [Concomitant]
     Active Substance: PREDNISOLONE
  22. ALFAROL [Concomitant]
     Active Substance: ALFACALCIDOL
  23. TAKEPRON (LANSOPRAZOLE) TABLET [Concomitant]
     Active Substance: LANSOPRAZOLE
  24. FOSAMAC (ALENDRONATE SODIUM) TABLET [Concomitant]
  25. BAKTAR (SULFAMETHOXAZOLE_TRIMETHOPRIM) TABLET [Concomitant]

REACTIONS (6)
  - Drug interaction [None]
  - Nephrotic syndrome [None]
  - Urinary retention [None]
  - Tremor [None]
  - Prostate cancer [None]
  - Drug level increased [None]

NARRATIVE: CASE EVENT DATE: 20090713
